FAERS Safety Report 7416144-6 (Version None)
Quarter: 2011Q2

REPORT INFORMATION
  Report Type: 
  Country: None (occurrence: None)
  Receive Date: 20110414
  Receipt Date: 20110406
  Transmission Date: 20111010
  Serious: Yes (Hospitalization, Other)
  Sender: FDA-Public Use
  Company Number: BR-MEDIMMUNE-MEDI-0013059

PATIENT
  Sex: Male
  Weight: 9.5 kg

DRUGS (3)
  1. SYNAGIS [Suspect]
     Indication: BRONCHOPULMONARY DYSPLASIA
     Route: 058
     Dates: start: 20100622, end: 20100622
  2. PHENOBARBITAL SRT [Concomitant]
     Dates: start: 20090601
  3. CARBAMAZEPINE [Concomitant]
     Dates: start: 20110101

REACTIONS (5)
  - COUGH [None]
  - TRACHEOSTOMY [None]
  - GASTROSTOMY [None]
  - LISTLESS [None]
  - PNEUMONIA ASPIRATION [None]
